FAERS Safety Report 7117300-7 (Version None)
Quarter: 2010Q4

REPORT INFORMATION
  Report Type: 
  Country: None (occurrence: None)
  Receive Date: 20101122
  Receipt Date: 20101109
  Transmission Date: 20110411
  Serious: Yes (Disabling)
  Sender: FDA-Public Use
  Company Number: US-ELI_LILLY_AND_COMPANY-US201011002861

PATIENT
  Sex: Female

DRUGS (2)
  1. HUMULIN 70/30 [Suspect]
     Dosage: 14 U, EACH MORNING
     Dates: start: 20091101
  2. HUMULIN 70/30 [Suspect]
     Dosage: 12 U, EACH EVENING
     Dates: start: 20091101

REACTIONS (3)
  - GENERAL PHYSICAL HEALTH DETERIORATION [None]
  - MEMORY IMPAIRMENT [None]
  - MOBILITY DECREASED [None]
